FAERS Safety Report 6477412-8 (Version None)
Quarter: 2009Q4

REPORT INFORMATION
  Report Type: 
  Country: None (occurrence: None)
  Receive Date: 20091207
  Receipt Date: 20091203
  Transmission Date: 20100525
  Serious: Yes (Death)
  Sender: FDA-Public Use
  Company Number: JP-SANOFI-AVENTIS-200912840JP

PATIENT
  Age: 56 Year
  Sex: Male

DRUGS (3)
  1. DOCETAXEL [Suspect]
     Route: 041
     Dates: start: 20090428, end: 20090428
  2. RINDERON [Concomitant]
  3. GLYCEOL [Concomitant]

REACTIONS (1)
  - INTERSTITIAL LUNG DISEASE [None]
